FAERS Safety Report 13411904 (Version 1)
Quarter: 2017Q2

REPORT INFORMATION
  Report Type: Spontaneous
  Country: ES (occurrence: ES)
  Receive Date: 20170406
  Receipt Date: 20170406
  Transmission Date: 20170830
  Serious: Yes (Other)
  Sender: FDA-Public Use
  Company Number: ES-PURDUE PHARMA-GBR-2017-0044458

PATIENT
  Age: 67 Year
  Sex: Male

DRUGS (6)
  1. TRYPTIZOL [Concomitant]
     Active Substance: AMITRIPTYLINE HYDROCHLORIDE
     Dosage: 25 MG, DAILY
  2. TARGIN [Suspect]
     Active Substance: NALOXONE HYDROCHLORIDE\OXYCODONE HYDROCHLORIDE
     Indication: PAIN
     Dosage: 1 DF, DAILY [5MG/2.5MG STRENGTH]
     Route: 048
     Dates: start: 201609, end: 20161020
  3. LORAZEPAM. [Concomitant]
     Active Substance: LORAZEPAM
     Dosage: 5 MG, DAILY
  4. SERTRALINE [Interacting]
     Active Substance: SERTRALINE HYDROCHLORIDE
     Indication: ADJUSTMENT DISORDER WITH ANXIETY
     Dosage: 100 MG, DAILY
     Route: 048
     Dates: start: 2016, end: 201610
  5. CARBAMAZEPINE. [Concomitant]
     Active Substance: CARBAMAZEPINE
     Dosage: 400 MG, DAILY
  6. PREGABALIN. [Concomitant]
     Active Substance: PREGABALIN
     Dosage: 300 MG, DAILY

REACTIONS (3)
  - Parkinsonian gait [Recovered/Resolved]
  - Hypertonia [Recovered/Resolved]
  - Drug interaction [Unknown]

NARRATIVE: CASE EVENT DATE: 20160920
